FAERS Safety Report 6900106-9 (Version None)
Quarter: 2010Q3

REPORT INFORMATION
  Report Type: 
  Country: None (occurrence: None)
  Receive Date: 20100803
  Receipt Date: 20100728
  Transmission Date: 20110219
  Serious: Yes (Other)
  Sender: FDA-Public Use
  Company Number: CA-ASTRAZENECA-2010SE35181

PATIENT
  Age: 57 Year
  Sex: Female

DRUGS (1)
  1. SENSORCAINE [Suspect]
     Route: 037

REACTIONS (1)
  - LIMB INJURY [None]
